FAERS Safety Report 9056555 (Version 3)
Quarter: 2013Q2

REPORT INFORMATION
  Report Type: Spontaneous
  Country: SK (occurrence: SK)
  Receive Date: 20130204
  Receipt Date: 20130410
  Transmission Date: 20140414
  Serious: Yes (Other)
  Sender: FDA-Public Use
  Company Number: SK-GLAXOSMITHKLINE-B0864281A

PATIENT
  Age: 22 Year
  Sex: Male

DRUGS (3)
  1. TROBALT [Suspect]
     Indication: EPILEPSY
     Route: 048
     Dates: start: 20120421, end: 20130117
  2. ZONISAMIDE [Concomitant]
     Route: 065
  3. LAMOTRIGINE [Concomitant]
     Route: 065

REACTIONS (3)
  - Dementia [Recovered/Resolved]
  - Vertigo [Recovered/Resolved]
  - Disorientation [Recovered/Resolved]
